FAERS Safety Report 13408231 (Version 1)
Quarter: 2017Q2

REPORT INFORMATION
  Report Type: Spontaneous
  Country: US (occurrence: US)
  Receive Date: 20170406
  Receipt Date: 20170406
  Transmission Date: 20170830
  Serious: Yes (Other)
  Sender: FDA-Public Use
  Company Number: US-CONCORDIA PHARMACEUTICALS INC.-GSH201703-002077

PATIENT
  Sex: Male

DRUGS (8)
  1. ARAVA [Suspect]
     Active Substance: LEFLUNOMIDE
  2. ATIVAN [Concomitant]
     Active Substance: LORAZEPAM
  3. HUMIRA [Suspect]
     Active Substance: ADALIMUMAB
  4. PREDNISONE. [Suspect]
     Active Substance: PREDNISONE
     Indication: RHEUMATOID ARTHRITIS
  5. XELJANZ [Concomitant]
     Active Substance: TOFACITINIB CITRATE
     Route: 048
  6. PLAQUENIL [Suspect]
     Active Substance: HYDROXYCHLOROQUINE SULFATE
     Dates: start: 2011, end: 2016
  7. SEROQUEL [Concomitant]
     Active Substance: QUETIAPINE FUMARATE
  8. LODINE [Suspect]
     Active Substance: ETODOLAC
     Dates: start: 2011, end: 2016

REACTIONS (2)
  - Drug ineffective [Unknown]
  - Rheumatoid arthritis [Unknown]
